FAERS Safety Report 16556707 (Version 1)
Quarter: 2019Q3

REPORT INFORMATION
  Report Type: Spontaneous
  Country: NL (occurrence: NL)
  Receive Date: 20190711
  Receipt Date: 20190711
  Transmission Date: 20191004
  Serious: Yes (Death, Other)
  Sender: FDA-Public Use
  Company Number: NL-AMGEN-NLDSP2019108332

PATIENT

DRUGS (8)
  1. PACLITAXEL. [Suspect]
     Active Substance: PACLITAXEL
     Indication: PRODUCT USED FOR UNKNOWN INDICATION
     Dosage: 50 MILLIGRAM/SQ. METER, CYCLICAL (5 CONSECUTIVE WEEKS ON DAYS 1, 8, 15, 22 AND 29)
     Route: 042
  2. RANITIDINE. [Concomitant]
     Active Substance: RANITIDINE
     Dosage: UNK
     Route: 042
  3. PANITUMUMAB [Suspect]
     Active Substance: PANITUMUMAB
     Indication: GASTROOESOPHAGEAL CANCER
     Dosage: 6 MILLIGRAM/KILOGRAM, CYCLICAL (ON DAYS 1, 15 AND 29)
     Route: 042
  4. ONDANSETRON [Concomitant]
     Active Substance: ONDANSETRON
     Route: 042
  5. CARBOPLATIN. [Suspect]
     Active Substance: CARBOPLATIN
     Indication: GASTROOESOPHAGEAL CANCER
     Dosage: UNK UNK, CYCLICAL (5 CONSECUTIVE WEEKS ON DAYS 1, 8, 15, 22 AND 29)
     Route: 042
  6. GRANISETRON [Concomitant]
     Active Substance: GRANISETRON
     Dosage: UNK
     Route: 042
  7. DEXAMETHASONE. [Concomitant]
     Active Substance: DEXAMETHASONE
     Dosage: UNK
     Route: 042
  8. CLEMASTINE [Concomitant]
     Active Substance: CLEMASTINE
     Dosage: UNK
     Route: 042

REACTIONS (21)
  - Anaphylactic reaction [Unknown]
  - Nausea [Unknown]
  - Disease recurrence [Fatal]
  - Mesenteric artery embolism [Fatal]
  - Volvulus [Fatal]
  - Atrial fibrillation [Unknown]
  - Pulmonary embolism [Fatal]
  - Neutropenia [Unknown]
  - Skin toxicity [Unknown]
  - Salivary gland neoplasm [Fatal]
  - Cerebrovascular accident [Fatal]
  - Anaemia [Unknown]
  - Fatigue [Unknown]
  - Post procedural complication [Fatal]
  - Vomiting [Unknown]
  - Off label use [Unknown]
  - Intestinal ischaemia [Fatal]
  - Thrombocytopenia [Unknown]
  - Diarrhoea [Unknown]
  - Bone marrow failure [Unknown]
  - Decreased appetite [Unknown]
